FAERS Safety Report 7538517-3 (Version None)
Quarter: 2011Q2

REPORT INFORMATION
  Report Type: 
  Country: None (occurrence: None)
  Receive Date: 20110610
  Receipt Date: 20110606
  Transmission Date: 20111010
  Serious: Yes (Hospitalization, Other)
  Sender: FDA-Public Use
  Company Number: GR-BIOGENIDEC-2011BI014004

PATIENT
  Age: 34 Year
  Sex: Female

DRUGS (5)
  1. LEGOFER [Concomitant]
     Route: 048
  2. CALCIORAL D3 [Concomitant]
     Route: 048
     Dates: start: 20070101
  3. TRIVIMIN [Concomitant]
     Route: 048
  4. TIZANIDINE HCL [Concomitant]
     Route: 048
  5. TYSABRI [Suspect]
     Indication: RELAPSING-REMITTING MULTIPLE SCLEROSIS
     Route: 042
     Dates: start: 20091204, end: 20110308

REACTIONS (1)
  - CERVICAL DYSPLASIA [None]
